FAERS Safety Report 20019064 (Version 1)
Quarter: 2021Q4

REPORT INFORMATION
  Report Type: Spontaneous
  Country: IN (occurrence: IN)
  Receive Date: 20211101
  Receipt Date: 20211101
  Transmission Date: 20220303
  Serious: Yes (Death, Life-Threatening, Hospitalization, Other)
  Sender: FDA-Public Use
  Company Number: IN-AMGEN-INDSP2021167121

PATIENT
  Age: 25 Year
  Sex: Male

DRUGS (10)
  1. FILGRASTIM [Suspect]
     Active Substance: FILGRASTIM
     Indication: Neutropenia
     Route: 065
  2. CEFOPERAZONE [Concomitant]
     Active Substance: CEFOPERAZONE
     Indication: Neutropenia
     Dosage: UNK
     Route: 042
  3. SULBACTAM [Concomitant]
     Active Substance: SULBACTAM
     Indication: Neutropenia
     Dosage: UNK
  4. AMIKACIN [Concomitant]
     Active Substance: AMIKACIN
     Indication: Neutropenia
     Dosage: UNK
     Route: 042
  5. CYCLOPHOSPHAMIDE [Concomitant]
     Active Substance: CYCLOPHOSPHAMIDE
     Indication: Acute lymphocytic leukaemia
     Dosage: UNK
  6. VINCRISTINE [Concomitant]
     Active Substance: VINCRISTINE
     Indication: Acute lymphocytic leukaemia
     Dosage: UNK
  7. DOXORUBICIN [Concomitant]
     Active Substance: DOXORUBICIN
     Indication: Acute lymphocytic leukaemia
     Dosage: UNK
  8. DEXAMETHASONE [Concomitant]
     Active Substance: DEXAMETHASONE
     Indication: Acute lymphocytic leukaemia
     Dosage: UNK
  9. METHOTREXATE [Concomitant]
     Active Substance: METHOTREXATE
     Indication: Acute lymphocytic leukaemia
     Dosage: UNK
     Route: 065
  10. CYTARABINE [Concomitant]
     Active Substance: CYTARABINE
     Indication: Acute lymphocytic leukaemia
     Dosage: UNK
     Route: 065

REACTIONS (11)
  - Multiple organ dysfunction syndrome [Fatal]
  - Sepsis [Fatal]
  - Trichosporon infection [Unknown]
  - Stomatitis [Unknown]
  - Febrile neutropenia [Unknown]
  - Septic shock [Unknown]
  - Metabolic acidosis [Unknown]
  - Acute kidney injury [Unknown]
  - Respiratory distress [Unknown]
  - Jaundice [Unknown]
  - Liver function test abnormal [Unknown]
